FAERS Safety Report 8836321 (Version 1)
Quarter: 2012Q4

REPORT INFORMATION
  Report Type: 
  Country: US (occurrence: US)
  Receive Date: 20121011
  Receipt Date: 20121011
  Transmission Date: 20130627
  Serious: Yes (Death)
  Sender: FDA-Public Use
  Company Number: US-ACTELION-A-NJ2012-72325

PATIENT
  Age: 53 Year
  Sex: Female

DRUGS (3)
  1. VELETRI [Suspect]
     Indication: PULMONARY ARTERIAL HYPERTENSION
     Dosage: 72 ng/kg, per min
     Route: 041
     Dates: start: 20120928, end: 20120930
  2. ADCIRCA [Concomitant]
  3. DICLOXACILLIN [Concomitant]
     Dosage: UNK
     Dates: start: 20120928

REACTIONS (3)
  - Death [Fatal]
  - Dyspnoea [Unknown]
  - Malaise [Unknown]
